FAERS Safety Report 18456328 (Version 1)
Quarter: 2020Q4

REPORT INFORMATION
  Report Type: Spontaneous
  Country: US (occurrence: US)
  Receive Date: 20201102
  Receipt Date: 20201102
  Transmission Date: 20210114
  Serious: No
  Sender: FDA-Public Use
  Company Number: None

PATIENT
  Age: 55 Year
  Sex: Female

DRUGS (1)
  1. BOTOX [Suspect]
     Active Substance: ONABOTULINUMTOXINA
     Dosage: ?          OTHER DOSE:155 UNITS;OTHER FREQUENCY:OTHER;?
     Route: 030
     Dates: start: 202008, end: 202010

REACTIONS (2)
  - Condition aggravated [None]
  - Migraine [None]

NARRATIVE: CASE EVENT DATE: 20200813
